FAERS Safety Report 15362817 (Version 2)
Quarter: 2018Q4

REPORT INFORMATION
  Report Type: Report from Study
  Country: CA (occurrence: CA)
  Receive Date: 20180907
  Receipt Date: 20181012
  Transmission Date: 20190204
  Serious: Yes (Other)
  Sender: FDA-Public Use
  Company Number: CA-JNJFOC-20180836965

PATIENT
  Age: 59 Year
  Sex: Female

DRUGS (11)
  1. METFORMIN [Concomitant]
     Active Substance: METFORMIN HYDROCHLORIDE
  2. AMLODIPINE [Concomitant]
     Active Substance: AMLODIPINE BESYLATE
  3. TREMFYA [Suspect]
     Active Substance: GUSELKUMAB
     Indication: PSORIASIS
     Dosage: STRENGTH = 100 MG
     Route: 058
     Dates: start: 20180728
  4. GARCINIA CAMBOGIA COMP [Concomitant]
     Active Substance: HERBALS\GARCINIA CAMBOGIA FRUIT
  5. MYRBETRIQ [Concomitant]
     Active Substance: MIRABEGRON
  6. ECHINACEA [Concomitant]
     Active Substance: ECHINACEA, UNSPECIFIED
  7. NORVASC [Concomitant]
     Active Substance: AMLODIPINE BESYLATE
  8. ACCUPRIL [Concomitant]
     Active Substance: QUINAPRIL HYDROCHLORIDE
  9. VITAMIN B12 [Concomitant]
     Active Substance: CYANOCOBALAMIN
  10. ASA [Concomitant]
     Active Substance: ASPIRIN
  11. CRESTOR [Concomitant]
     Active Substance: ROSUVASTATIN CALCIUM

REACTIONS (2)
  - Lower respiratory tract infection [Recovering/Resolving]
  - Therapy non-responder [Unknown]

NARRATIVE: CASE EVENT DATE: 20180803
